FAERS Safety Report 8954858 (Version 2)
Quarter: 2013Q1

REPORT INFORMATION
  Report Type: Spontaneous
  Country: US (occurrence: US)
  Receive Date: 20121210
  Receipt Date: 20130115
  Transmission Date: 20140127
  Serious: No
  Sender: FDA-Public Use
  Company Number: US-ROXANE LABORATORIES, INC.-2012-RO-02479RO

PATIENT
  Sex: Male

DRUGS (2)
  1. PROTRIPTYLINE HYDROCHLORIDE [Suspect]
     Indication: CATAPLEXY
     Dosage: 10 MG
     Route: 048
     Dates: start: 20121108
  2. PROTRIPTYLINE HYDROCHLORIDE [Suspect]
     Indication: NARCOLEPSY

REACTIONS (2)
  - Drug ineffective for unapproved indication [Not Recovered/Not Resolved]
  - Product quality issue [Not Recovered/Not Resolved]
